FAERS Safety Report 8905638 (Version 1)
Quarter: 2012Q4

REPORT INFORMATION
  Report Type: 
  Country: US (occurrence: US)
  Receive Date: 20121109
  Receipt Date: 20121109
  Transmission Date: 20130627
  Serious: Yes (Other)
  Sender: FDA-Public Use
  Company Number: PHHY2011US117428

PATIENT
  Age: 51 Year
  Sex: Female
  Weight: 93.16 kg

DRUGS (14)
  1. GILENYA [Suspect]
     Indication: RELAPSING-REMITTING MULTIPLE SCLEROSIS
     Dosage: 0.5 mg, daily
     Route: 048
     Dates: start: 201103
  2. CALCIUM [Concomitant]
  3. MAGNESIUM [Concomitant]
  4. PROVIGIL [Concomitant]
     Indication: FATIGUE
     Dosage: 100 mg, QD
     Dates: start: 20101208
  5. FLOMAX [Concomitant]
     Indication: NEUROGENIC BLADDER
  6. VITAMIN D [Concomitant]
  7. LEXAPRO [Concomitant]
     Indication: DEPRESSION
     Dosage: 20 mg, daily
     Route: 048
     Dates: start: 20101116
  8. ROPINIROLE [Concomitant]
     Indication: RESTLESS LEGS SYNDROME
  9. CIPRO [Concomitant]
  10. MIRAPEX [Concomitant]
     Indication: RESTLESS LEGS SYNDROME
     Dosage: 1 DF, QD
     Dates: start: 20101208
  11. LIORESAL [Concomitant]
     Dosage: 1 DF (Three to four times daily)
     Route: 048
  12. COENZYME Q10 [Concomitant]
     Dosage: 1 DF, TID
  13. VITAMIN D3 [Concomitant]
     Dosage: 5 DF, QD
  14. NUVIGIL [Concomitant]
     Dosage: 150 mg, daily
     Route: 048

REACTIONS (6)
  - Central nervous system lesion [Recovered/Resolved]
  - Urinary tract infection [Recovered/Resolved]
  - Micturition urgency [Recovered/Resolved]
  - Urine analysis abnormal [Recovered/Resolved]
  - Leukopenia [Not Recovered/Not Resolved]
  - Fatigue [Unknown]
